FAERS Safety Report 5027991-2 (Version None)
Quarter: 2006Q2

REPORT INFORMATION
  Report Type: 
  Country: None (occurrence: None)
  Receive Date: 20060612
  Receipt Date: 20060605
  Transmission Date: 20061013
  Serious: Yes (Hospitalization)
  Sender: FDA-Public Use
  Company Number: HQWYE347215MAY06

PATIENT
  Age: 82 Year
  Sex: Male

DRUGS (6)
  1. ETODOLAC [Suspect]
     Indication: ARTHRALGIA
     Dosage: 400 MG 1X PER 1 DAY
     Route: 048
     Dates: start: 20060401, end: 20060412
  2. ASPIRIN [Suspect]
     Indication: CEREBRAL INFARCTION
     Dosage: 100 MG 1X PER 1 DAY
     Route: 045
     Dates: start: 20030501
  3. NADOLOL [Concomitant]
  4. LIVALO (PITAVASTATIN CALCIUM) [Concomitant]
  5. NIFEDIPINE [Concomitant]
  6. ETIZOLAM [Concomitant]

REACTIONS (3)
  - ANAEMIA [None]
  - GASTRIC NEOPLASM [None]
  - GASTRIC ULCER HAEMORRHAGE [None]
